FAERS Safety Report 6908487-7 (Version None)
Quarter: 2010Q3

REPORT INFORMATION
  Report Type: 
  Country: None (occurrence: None)
  Receive Date: 20100805
  Receipt Date: 20100726
  Transmission Date: 20110219
  Serious: Yes (Other)
  Sender: FDA-Public Use
  Company Number: JP-PFIZER INC-2010092895

PATIENT
  Age: 82 Year
  Sex: Female

DRUGS (4)
  1. SELARA [Suspect]
     Indication: HYPERTENSION
     Dosage: 50 MG, UNK
     Route: 048
     Dates: end: 20100701
  2. LASIX [Concomitant]
     Indication: HYPERTENSION
     Dosage: 20 MG, UNK
     Route: 048
  3. MEVALOTIN [Concomitant]
     Indication: HYPERLIPIDAEMIA
     Dosage: 10 MG, UNK
     Route: 048
  4. WARFARIN [Concomitant]
     Dosage: 1.5 MG, UNK
     Route: 048
     Dates: start: 20100721

REACTIONS (2)
  - DEHYDRATION [None]
  - HYPOKALAEMIA [None]
